FAERS Safety Report 8049366-4 (Version None)
Quarter: 2012Q1

REPORT INFORMATION
  Report Type: 
  Country: None (occurrence: None)
  Receive Date: 20120117
  Receipt Date: 20120109
  Transmission Date: 20120608
  Serious: Yes (Other)
  Sender: FDA-Public Use
  Company Number: US-PFIZER INC-2011226447

PATIENT
  Sex: Male

DRUGS (2)
  1. CHANTIX [Suspect]
     Dosage: 0.5 MG, 2X/DAY
     Route: 048
     Dates: start: 20120109
  2. CHANTIX [Suspect]
     Indication: SMOKING CESSATION THERAPY
     Dosage: UNK
     Route: 048

REACTIONS (18)
  - STRESS [None]
  - HYPERTENSION [None]
  - AGGRESSION [None]
  - FEELING ABNORMAL [None]
  - IRRITABILITY [None]
  - BLOOD CHOLESTEROL INCREASED [None]
  - PANIC ATTACK [None]
  - ABNORMAL DREAMS [None]
  - SUICIDAL IDEATION [None]
  - FRUSTRATION [None]
  - NEGATIVE THOUGHTS [None]
  - IMPAIRED DRIVING ABILITY [None]
  - FEAR [None]
  - DYSPNOEA [None]
  - DRUG INEFFECTIVE [None]
  - THINKING ABNORMAL [None]
  - DECREASED INTEREST [None]
  - HEADACHE [None]
